FAERS Safety Report 24263263 (Version 1)
Quarter: 2024Q3

REPORT INFORMATION
  Report Type: Spontaneous
  Country: JP (occurrence: JP)
  Receive Date: 20240829
  Receipt Date: 20240829
  Transmission Date: 20241017
  Serious: Yes (Other)
  Sender: ASTELLAS
  Company Number: JP-ASTELLAS-2024-AER-000112

PATIENT
  Age: 58 Year
  Sex: Female

DRUGS (9)
  1. TACROLIMUS [Suspect]
     Active Substance: TACROLIMUS
     Indication: Mixed connective tissue disease
     Dosage: 1.5MG/D
     Route: 048
  2. TACROLIMUS [Suspect]
     Active Substance: TACROLIMUS
     Indication: Organising pneumonia
  3. TOZINAMERAN [Suspect]
     Active Substance: TOZINAMERAN
     Indication: Product used for unknown indication
     Route: 065
  4. PREDNISOLONE [Concomitant]
     Active Substance: PREDNISOLONE
     Indication: Mixed connective tissue disease
     Route: 048
  5. PREDNISOLONE [Concomitant]
     Active Substance: PREDNISOLONE
     Indication: Organising pneumonia
     Route: 048
  6. HYDROXYCHLOROQUINE SULFATE [Concomitant]
     Active Substance: HYDROXYCHLOROQUINE SULFATE
     Indication: Mixed connective tissue disease
     Route: 048
  7. HYDROXYCHLOROQUINE SULFATE [Concomitant]
     Active Substance: HYDROXYCHLOROQUINE SULFATE
     Indication: Pneumonia
  8. ACYCLOVIR [Concomitant]
     Active Substance: ACYCLOVIR
     Indication: Necrotising retinitis
     Route: 042
  9. ACYCLOVIR [Concomitant]
     Active Substance: ACYCLOVIR
     Indication: Herpes simplex test positive

REACTIONS (4)
  - Necrotising retinitis [Recovering/Resolving]
  - Rhegmatogenous retinal detachment [Recovering/Resolving]
  - Herpes simplex test positive [Recovering/Resolving]
  - Off label use [Unknown]
